FAERS Safety Report 5923990-4 (Version None)
Quarter: 2008Q4

REPORT INFORMATION
  Report Type: 
  Country: None (occurrence: None)
  Receive Date: 20081020
  Receipt Date: 20081010
  Transmission Date: 20090506
  Serious: Yes (Other)
  Sender: FDA-Public Use
  Company Number: PHHY2008BR24564

PATIENT
  Age: 59 Year
  Sex: Female
  Weight: 65.5 kg

DRUGS (1)
  1. CODATEN [Suspect]
     Indication: SKELETAL INJURY
     Dosage: 1 DF, Q6H
     Route: 048
     Dates: start: 20081005

REACTIONS (7)
  - ABDOMINAL DISCOMFORT [None]
  - DEPRESSION [None]
  - DIZZINESS [None]
  - EMOTIONAL DISTRESS [None]
  - PRESYNCOPE [None]
  - VISUAL IMPAIRMENT [None]
  - VOMITING [None]
